FAERS Safety Report 12608804 (Version 3)
Quarter: 2016Q4

REPORT INFORMATION
  Report Type: Spontaneous
  Country: JP (occurrence: JP)
  Receive Date: 20160729
  Receipt Date: 20161118
  Transmission Date: 20170207
  Serious: Yes (Other)
  Sender: FDA-Public Use
  Company Number: JP-ASTRAZENECA-2016SE80863

PATIENT
  Age: 28876 Day
  Sex: Female
  Weight: 71 kg

DRUGS (24)
  1. WARFARIN [Interacting]
     Active Substance: WARFARIN
     Indication: ATRIAL FIBRILLATION
     Dosage: 3 MG, EVERY DAY, AFTER BREAKFAST
     Route: 065
  2. ALDACTONE A [Concomitant]
     Active Substance: SPIRONOLACTONE
     Dosage: 25 MG, DAILY, AFTER BREAKFAST
     Route: 048
  3. FRANDOL [Concomitant]
     Active Substance: ISOSORBIDE DINITRATE
     Route: 062
  4. LYRICA [Concomitant]
     Active Substance: PREGABALIN
     Dosage: 25 MG, DAILY, AFTER BREAKFAST AND BEFORE BEDTIME
     Route: 048
  5. MUCOSTA [Concomitant]
     Active Substance: REBAMIPIDE
     Dosage: 100 MG, DAILY, AFTER BREAKFAST AND SUPPER
     Route: 048
  6. TAKEPRON [Concomitant]
     Active Substance: LANSOPRAZOLE
     Route: 048
  7. AMLODIPINE [Concomitant]
     Active Substance: AMLODIPINE BESYLATE
     Dosage: 5 MG
     Route: 048
  8. NEXIUM [Suspect]
     Active Substance: ESOMEPRAZOLE MAGNESIUM
     Indication: GASTROOESOPHAGEAL REFLUX DISEASE
     Dosage: 20 MG, EVERY DAY, AFTER BREAKFAST
     Route: 048
     Dates: start: 20160601, end: 20160702
  9. AMLODIPINE [Concomitant]
     Active Substance: AMLODIPINE BESYLATE
     Dosage: 5 MG, DAILY, AFTER BREAKFAST
     Route: 048
  10. LASIX [Concomitant]
     Active Substance: FUROSEMIDE
     Dosage: 40 MG, DAILY, AFTER BREAKFAST
     Route: 048
  11. ALINAMIN F [Concomitant]
     Active Substance: FURSULTIAMINE HYDROCHLORIDE
     Dosage: 50 MG, DAILY, AFTER BREAKFAST AND SUPPER
     Route: 048
  12. METHYCOBAL [Concomitant]
     Active Substance: METHYLCOBALAMIN
     Dosage: 500 UG, DAILY, AFTER EVERY MEAL
     Route: 048
  13. LOXONIN [Concomitant]
     Active Substance: LOXOPROFEN SODIUM
     Route: 062
  14. LIMAPROST ALFADEX [Concomitant]
     Active Substance: LIMAPROST
     Dosage: 5 UG, DAILY, AFTER EVERY MEAL
     Route: 048
  15. WARFARIN [Interacting]
     Active Substance: WARFARIN
     Indication: ATRIAL FIBRILLATION
     Dosage: 0.5 MG, EVERY DAY, AFTER BREAKFAST
     Route: 065
     Dates: end: 2016
  16. ASPARA POTASSIUM [Interacting]
     Active Substance: POTASSIUM ASPARTATE
     Indication: MINERAL SUPPLEMENTATION
     Dosage: 300 MG, EVERY DAY, AFTER BREAKFAST AND SUPPER
     Route: 048
  17. BAYASPIRIN [Concomitant]
     Active Substance: ASPIRIN
     Dosage: 100 MG, DAILY, AFTER BREAKFAST
     Route: 048
  18. VASOLAN [Concomitant]
     Active Substance: VERAPAMIL HYDROCHLORIDE
     Dosage: 40 MG, DAILY, AFTER EVERY MEAL
  19. CELECOX [Concomitant]
     Active Substance: CELECOXIB
     Dosage: 100 MG, DAILY, AFTER BREAKFAST AND SUPPER
     Route: 048
  20. EQUMET [Concomitant]
     Active Substance: METFORMIN HYDROCHLORIDE\VILDAGLIPTIN
     Dosage: LOW DOSE FORMULATION, AFTER BREAKFAST AND SUPPER
     Route: 048
  21. JANUVIA [Interacting]
     Active Substance: SITAGLIPTIN PHOSPHATE
     Indication: DIABETES MELLITUS
     Dosage: 50 MG, EVERY DAY, AFTER BREAKFAST
     Route: 048
  22. GLAKAY [Concomitant]
     Active Substance: MENATETRENONE
     Dosage: DOSE UNKNOWN, AFTER MEALS
     Route: 048
  23. DIOVAN [Interacting]
     Active Substance: VALSARTAN
     Indication: HYPERTENSION
     Dosage: 40 MG, EVERY DAY, AFTER BREAKFAST
     Route: 048
  24. BLOPRESS [Concomitant]
     Active Substance: CANDESARTAN CILEXETIL
     Dosage: 4 MG
     Route: 048

REACTIONS (3)
  - International normalised ratio increased [Recovered/Resolved]
  - Drug interaction [Unknown]
  - Haemorrhage subcutaneous [Recovered/Resolved]

NARRATIVE: CASE EVENT DATE: 20160722
